FAERS Safety Report 5132788-9 (Version None)
Quarter: 2006Q4

REPORT INFORMATION
  Report Type: 
  Country: None (occurrence: None)
  Receive Date: 20061023
  Receipt Date: 20061017
  Transmission Date: 20070319
  Serious: Yes (Other)
  Sender: FDA-Public Use
  Company Number: DE-MERCK-0610DEU00068

PATIENT
  Age: 71 Year
  Sex: Male

DRUGS (2)
  1. VYTORIN [Suspect]
     Indication: HYPERCHOLESTEROLAEMIA
     Route: 048
     Dates: start: 20050601, end: 20060823
  2. ASPIRIN [Concomitant]
     Route: 048
     Dates: start: 20051201

REACTIONS (1)
  - CONVULSION [None]
